FAERS Safety Report 7368036-9 (Version None)
Quarter: 2011Q1

REPORT INFORMATION
  Report Type: 
  Country: None (occurrence: None)
  Receive Date: 20110323
  Receipt Date: 20110310
  Transmission Date: 20110831
  Serious: Yes (Hospitalization)
  Sender: FDA-Public Use
  Company Number: DE-AMGEN-DEUCT2011006982

PATIENT
  Age: 69 Year
  Sex: Male

DRUGS (9)
  1. MTX                                /00113801/ [Concomitant]
     Indication: RHEUMATOID ARTHRITIS
     Dosage: 25 MG, WEEKLY
     Route: 058
     Dates: start: 20010101, end: 20110101
  2. FUROSEMID                          /00032601/ [Concomitant]
     Dosage: UNK
  3. ETANERCEPT [Suspect]
     Indication: RHEUMATOID ARTHRITIS
     Dosage: 50 MG, QWK
     Route: 058
     Dates: start: 20090828, end: 20110101
  4. DICLAC                             /00372302/ [Concomitant]
     Indication: RHEUMATOID ARTHRITIS
     Dosage: 150 MG, 1X/DAY AS NEEDED
     Route: 048
     Dates: start: 20010101, end: 20110101
  5. ASPIRIN [Concomitant]
     Dosage: UNK
  6. GLIBENCLAMIDE [Concomitant]
     Dosage: UNK
  7. JANUVIA [Concomitant]
     Indication: DIABETES MELLITUS
  8. INSULIN [Concomitant]
     Dosage: FOUR TIMES DAILY
  9. OMEPRAZOLE [Concomitant]
     Dosage: UNK

REACTIONS (3)
  - BLOOD TEST ABNORMAL [None]
  - CIRCULATORY COLLAPSE [None]
  - SLOW RESPONSE TO STIMULI [None]
